FAERS Safety Report 11213582 (Version 1)
Quarter: 2015Q2

REPORT INFORMATION
  Report Type: Spontaneous
  Country: US (occurrence: US)
  Receive Date: 20150623
  Receipt Date: 20150623
  Transmission Date: 20150821
  Serious: No
  Sender: FDA-Public Use
  Company Number: US-009507513-1506USA008850

PATIENT
  Age: 28 Year
  Sex: Female
  Weight: 64.4 kg

DRUGS (1)
  1. NEXPLANON [Suspect]
     Active Substance: ETONOGESTREL
     Indication: PRODUCT USED FOR UNKNOWN INDICATION
     Dosage: 1 ROD EVERY THREE YEARS
     Route: 059
     Dates: start: 20141120

REACTIONS (3)
  - No adverse event [Unknown]
  - Device deployment issue [Unknown]
  - Medical device complication [Unknown]

NARRATIVE: CASE EVENT DATE: 20141120
